FAERS Safety Report 11029171 (Version 2)
Quarter: 2018Q4

REPORT INFORMATION
  Report Type: Report from Study
  Country: BR (occurrence: BR)
  Receive Date: 20150415
  Receipt Date: 20181017
  Transmission Date: 20190204
  Serious: Yes (Other)
  Sender: FDA-Public Use
  Company Number: PHHY2014BR133462

PATIENT
  Age: 62 Year
  Sex: Female
  Weight: 72 kg

DRUGS (8)
  1. PREDNISON [Suspect]
     Active Substance: PREDNISONE
     Dosage: 20 MG, UNK
     Route: 065
  2. ALENIA [Suspect]
     Active Substance: BUDESONIDE\FORMOTEROL FUMARATE
     Indication: PRODUCT USED FOR UNKNOWN INDICATION
     Route: 065
  3. PREDNISON [Suspect]
     Active Substance: PREDNISONE
     Indication: ASTHMATIC CRISIS
     Dosage: 1 DF, QD
     Route: 065
     Dates: start: 1982
  4. XOLAIR [Suspect]
     Active Substance: OMALIZUMAB
     Indication: ASTHMA
     Dosage: 2 DF
     Route: 065
     Dates: start: 20130603
  5. CALTRATE//CALCIUM CARBONATE [Concomitant]
     Indication: BONE DISORDER
     Dosage: 1 DF, QD
     Route: 065
     Dates: start: 2010
  6. DICLOFENAC [Concomitant]
     Active Substance: DICLOFENAC
     Indication: ANTIINFLAMMATORY THERAPY
     Dosage: 2 DF, DAILY
     Route: 065
     Dates: start: 20141006
  7. CALCIUM [Suspect]
     Active Substance: CALCIUM
     Indication: PRODUCT USED FOR UNKNOWN INDICATION
     Route: 065
  8. XOLAIR [Suspect]
     Active Substance: OMALIZUMAB
     Dosage: 300 MG, EVERY 15 DAYS
     Route: 058
     Dates: start: 20130705

REACTIONS (23)
  - Gait inability [Recovering/Resolving]
  - Contusion [Recovering/Resolving]
  - Asthmatic crisis [Recovering/Resolving]
  - Hernia [Not Recovered/Not Resolved]
  - Back pain [Not Recovered/Not Resolved]
  - Lower limb fracture [Recovering/Resolving]
  - Pneumonitis [Recovered/Resolved]
  - Malaise [Recovering/Resolving]
  - Hand fracture [Unknown]
  - Fall [Recovered/Resolved]
  - Upper limb fracture [Recovering/Resolving]
  - Cardiovascular insufficiency [Not Recovered/Not Resolved]
  - Pain in extremity [Not Recovered/Not Resolved]
  - Weight increased [Not Recovered/Not Resolved]
  - Dizziness [Recovered/Resolved]
  - Pneumonia [Recovered/Resolved]
  - Secretion discharge [Unknown]
  - Body height decreased [Not Recovered/Not Resolved]
  - Fatigue [Recovering/Resolving]
  - Joint dislocation [Recovering/Resolving]
  - Foot fracture [Recovering/Resolving]
  - Ankle fracture [Unknown]
  - Pyrexia [Recovered/Resolved]

NARRATIVE: CASE EVENT DATE: 2015
